FAERS Safety Report 15230888 (Version 2)
Quarter: 2018Q3

REPORT INFORMATION
  Report Type: Spontaneous
  Country: GB (occurrence: GB)
  Receive Date: 20180802
  Receipt Date: 20180810
  Transmission Date: 20181010
  Serious: Yes (Hospitalization, Other)
  Sender: FDA-Public Use
  Company Number: GB-TORRENT-00016965

PATIENT
  Age: 66 Year
  Sex: Male

DRUGS (4)
  1. RAMIPRIL. [Suspect]
     Active Substance: RAMIPRIL
     Indication: PRODUCT USED FOR UNKNOWN INDICATION
     Dosage: INGESTION
     Route: 048
  2. DULOXETINE. [Suspect]
     Active Substance: DULOXETINE
     Indication: PRODUCT USED FOR UNKNOWN INDICATION
     Dosage: INGESTION
     Route: 048
  3. LERCANIDIPINE [Suspect]
     Active Substance: LERCANIDIPINE
     Indication: PRODUCT USED FOR UNKNOWN INDICATION
     Dosage: INGESTION
     Route: 048
  4. QUETIAPINE. [Suspect]
     Active Substance: QUETIAPINE
     Indication: PRODUCT USED FOR UNKNOWN INDICATION
     Dosage: INGESTION
     Route: 048

REACTIONS (6)
  - Bradycardia [Recovered/Resolved]
  - Renal failure [Recovered/Resolved]
  - Somnolence [Recovered/Resolved]
  - Hypotension [Recovered/Resolved]
  - Overdose [Unknown]
  - Lethargy [Recovered/Resolved]
